FAERS Safety Report 9779841 (Version 2)
Quarter: 2014Q1

REPORT INFORMATION
  Report Type: Spontaneous
  Country: US (occurrence: US)
  Receive Date: 20131223
  Receipt Date: 20140130
  Transmission Date: 20141002
  Serious: Yes (Death, Hospitalization)
  Sender: FDA-Public Use
  Company Number: US-B.I. PHARMACEUTICALS,INC./RIDGEFIELD-2013-BI-43431BP

PATIENT
  Age: 87 Year
  Sex: Male
  Weight: 81.65 kg

DRUGS (5)
  1. PRADAXA [Suspect]
     Dates: start: 20110711, end: 20120629
  2. PLAVIX [Concomitant]
  3. ASPIRIN [Concomitant]
  4. MULTIVITAMIN [Concomitant]
  5. SIMVASTATIN [Concomitant]

REACTIONS (4)
  - Subdural haematoma [Fatal]
  - Haemorrhage intracranial [Fatal]
  - Hypoxic-ischaemic encephalopathy [Fatal]
  - Fall [Unknown]
